FAERS Safety Report 12543431 (Version 1)
Quarter: 2016Q3

REPORT INFORMATION
  Report Type: Spontaneous
  Country: US (occurrence: US)
  Receive Date: 20160711
  Receipt Date: 20160711
  Transmission Date: 20161109
  Serious: No
  Sender: FDA-Public Use
  Company Number: US-TEVA-636491USA

PATIENT
  Sex: Male

DRUGS (1)
  1. VENLAFAXINE [Suspect]
     Active Substance: VENLAFAXINE HYDROCHLORIDE
     Dosage: 300 MILLIGRAM DAILY;
     Route: 065
     Dates: start: 2016

REACTIONS (4)
  - Dizziness [Unknown]
  - Headache [Unknown]
  - Product substitution issue [Unknown]
  - Vision blurred [Unknown]

NARRATIVE: CASE EVENT DATE: 2016
